FAERS Safety Report 6643693-0 (Version None)
Quarter: 2010Q1

REPORT INFORMATION
  Report Type: 
  Country: None (occurrence: None)
  Receive Date: 20100322
  Receipt Date: 20100312
  Transmission Date: 20100710
  Serious: Yes (Hospitalization)
  Sender: FDA-Public Use
  Company Number: US-BIOGENIDEC-2009BI031680

PATIENT
  Age: 61 Year
  Sex: Female

DRUGS (1)
  1. TYSABRI [Suspect]
     Indication: MULTIPLE SCLEROSIS
     Route: 042
     Dates: start: 20070618

REACTIONS (9)
  - ALOPECIA [None]
  - CONFUSIONAL STATE [None]
  - HEADACHE [None]
  - HERPES ZOSTER [None]
  - MEMORY IMPAIRMENT [None]
  - MENINGITIS ASEPTIC [None]
  - MENINGITIS HERPES [None]
  - PRURITUS [None]
  - VOMITING [None]
